FAERS Safety Report 4578429-0 (Version None)
Quarter: 2005Q1

REPORT INFORMATION
  Report Type: 
  Country: None (occurrence: None)
  Receive Date: 20050203
  Receipt Date: 20050203
  Transmission Date: 20050727
  Serious: Yes (Hospitalization)
  Sender: FDA-Public Use
  Company Number: None

PATIENT
  Age: 31 Year
  Sex: Male
  Weight: 67 kg

DRUGS (7)
  1. RITUXIMAB 375 MG/M2 GENENTECH [Suspect]
     Indication: GRAFT VERSUS HOST DISEASE
     Dosage: 375 MG/M2 1/WEEK , X 4 INTRAVENOU
     Route: 042
     Dates: start: 20041105, end: 20041126
  2. LEVAQUIN [Concomitant]
  3. ACTIGALL [Concomitant]
  4. BACTRIM [Concomitant]
  5. DIFLUCAN [Concomitant]
  6. HUMALOG [Concomitant]
  7. ZYPREXA [Concomitant]

REACTIONS (8)
  - CHEST PAIN [None]
  - COUGH [None]
  - NAUSEA [None]
  - NIGHT SWEATS [None]
  - PLEURITIC PAIN [None]
  - PYREXIA [None]
  - SPUTUM DISCOLOURED [None]
  - VIRAL INFECTION [None]
